FAERS Safety Report 9785197 (Version 6)
Quarter: 2014Q1

REPORT INFORMATION
  Report Type: Spontaneous
  Country: US (occurrence: None)
  Receive Date: 20131224
  Receipt Date: 20140324
  Transmission Date: 20141002
  Serious: Yes (Hospitalization)
  Sender: FDA-Public Use
  Company Number: SYM-2013-13986

PATIENT
  Age: 68 Year
  Sex: Male

DRUGS (35)
  1. BUPROPION HYDROCHLORIDE (BUPROPION HYDROCHLORIDE) (BUPROPION HYDROCHLORIDE) [Suspect]
     Indication: DEPRESSION
     Route: 048
     Dates: start: 20120830, end: 20130722
  2. BLINDED TRIAL MEDICATION [Suspect]
     Indication: CHRONIC OBSTRUCTIVE PULMONARY DISEASE
     Dates: start: 20120224
  3. TRAZODONE (TRAZODONE) [Suspect]
     Indication: DEPRESSION
     Route: 048
     Dates: start: 20130626, end: 20130805
  4. AMITRIPTYLINE (AMITRIPTYLINE) [Suspect]
     Indication: DEPRESSION
     Route: 048
     Dates: start: 20130722, end: 20131004
  5. NORVASC (AMLODIPINE BESILATE) [Concomitant]
  6. LISINOPRIL (LISINOPRIL) (LISINOPRIL) [Concomitant]
  7. VITAMIN D3 (COLECALCIFEROL) [Concomitant]
  8. LUMIGAN (BIMATOPROST) [Concomitant]
  9. VICODIN (VICODIN) (PARACETAMOL, HYDROCODONE BITARTRATE) [Concomitant]
  10. GABAPENTIN (GABAPENTIN) [Concomitant]
  11. ROBITUSSIN (GUAIFENESIN) [Concomitant]
  12. NOVOLOG (INSULIN ASPART) [Concomitant]
  13. ASPIRIN (ACETYLSALICYLIC ACID) [Concomitant]
  14. VITAMIN C (ASCORBIC ACID) [Concomitant]
  15. ROPINIROLE (ROPINIROLE) [Concomitant]
  16. METOPROLOL (METOPROLOL) [Concomitant]
  17. MAGNESIUM OXIDE (MAGNESIUM OXIDE) [Concomitant]
  18. LANTUS (INSULIN GLARGINE) [Concomitant]
  19. TESTOSTERONE CYPIONATE (TESTOSTERONE CIPIONATE) [Concomitant]
  20. OMEPRAZOLE (OMEPRAZOLE) [Concomitant]
  21. DEEP SEA PREMIUM SALINE (SODIUM CHLORIDE) [Concomitant]
  22. HYDRALAZINE (HYDRALAZINE) [Concomitant]
  23. LIPTOR (ATORVASTATIN) [Concomitant]
  24. CIALIS (TADALAFIL) [Concomitant]
  25. ZOLPIDEM (ZOLPIDEM) [Concomitant]
  26. ATIVAN (LORAZEPAM) [Concomitant]
  27. VITAMIN A + D (VITAMIDYNE A AND D /00343801/) (ERGOCALCIFEROL, RETINOL) [Concomitant]
  28. NEXIUM (ESOMEPRAZOLE MAGNESIUM) [Concomitant]
  29. DEPAKOTE (VALPROATE SEMISODIUM) [Concomitant]
  30. CLONIDINE (CLONIDINE) [Concomitant]
  31. COLACE [Concomitant]
  32. HEPARIN (HEPARIN) [Concomitant]
  33. XALATAN (LATANOPROST) [Concomitant]
  34. SYMBICORT (BUDESONIDE W/FORMOTEROL FUMARATE) (FORMOTEROL FUMARATE, BUDESONIDE) [Concomitant]
  35. ALBUTEROL (SALBUTAMOL) [Concomitant]

REACTIONS (5)
  - Asthenia [None]
  - Overdose [None]
  - Mental status changes [None]
  - Toxicity to various agents [None]
  - Vascular calcification [None]
